FAERS Safety Report 25749642 (Version 1)
Quarter: 2025Q3

REPORT INFORMATION
  Report Type: Spontaneous
  Country: US (occurrence: US)
  Receive Date: 20250902
  Receipt Date: 20250902
  Transmission Date: 20251021
  Serious: No
  Sender: SUNOVION
  Company Number: US-SMPA-2025SPA010921

PATIENT
  Age: 59 Year
  Sex: Male

DRUGS (27)
  1. ORGOVYX [Suspect]
     Active Substance: RELUGOLIX
     Indication: Product used for unknown indication
     Route: 048
  2. ORGOVYX [Suspect]
     Active Substance: RELUGOLIX
     Route: 048
  3. TOPROL XL [Concomitant]
     Active Substance: METOPROLOL SUCCINATE
  4. CRESTOR [Concomitant]
     Active Substance: ROSUVASTATIN CALCIUM
  5. RAPAFLO [Concomitant]
     Active Substance: SILODOSIN
  6. FINASTERIDE [Concomitant]
     Active Substance: FINASTERIDE
  7. CIALIS [Concomitant]
     Active Substance: TADALAFIL
  8. VASCEPA [Concomitant]
     Active Substance: ICOSAPENT ETHYL
  9. OXYCODONE [Concomitant]
     Active Substance: OXYCODONE
  10. HYDROMORPHONE [Concomitant]
     Active Substance: HYDROMORPHONE
  11. ONDANSETRON [Concomitant]
     Active Substance: ONDANSETRON
  12. ANUCORT-HC [Concomitant]
     Active Substance: HYDROCORTISONE ACETATE
     Route: 054
  13. LIVER EXTRACT [Concomitant]
     Active Substance: MAMMAL LIVER
  14. LECITHIN [Concomitant]
     Active Substance: LECITHIN
  15. DIETARY SUPPLEMENT\RESVERATROL [Concomitant]
     Active Substance: DIETARY SUPPLEMENT\RESVERATROL
  16. Vitamin c complex [Concomitant]
  17. Ultimate Friendly Flora Probiotic [Concomitant]
  18. Ultimate eye support with astaxanthin [Concomitant]
  19. MENAQUINONE 6 [Concomitant]
     Active Substance: MENAQUINONE 6
  20. VITAMINS [Concomitant]
     Active Substance: VITAMINS
  21. ZYRTEC [Concomitant]
     Active Substance: CETIRIZINE HYDROCHLORIDE
  22. FAMOTIDINE [Concomitant]
     Active Substance: FAMOTIDINE
  23. OXYMETAZOLINE [Concomitant]
     Active Substance: OXYMETAZOLINE
  24. GAVISCON [Concomitant]
     Active Substance: ALUMINUM HYDROXIDE\MAGNESIUM CARBONATE
  25. GAS RELIEF [Concomitant]
     Active Substance: DIMETHICONE
  26. ACETAMINOPHEN [Concomitant]
     Active Substance: ACETAMINOPHEN
  27. IBUPROFEN [Concomitant]
     Active Substance: IBUPROFEN

REACTIONS (3)
  - Pain [Unknown]
  - Arthralgia [Unknown]
  - Myalgia [Unknown]
